FAERS Safety Report 4558375-9 (Version None)
Quarter: 2005Q1

REPORT INFORMATION
  Report Type: 
  Country: None (occurrence: None)
  Receive Date: 20050121
  Receipt Date: 20040707
  Transmission Date: 20050727
  Serious: Yes (Death, Hospitalization)
  Sender: FDA-Public Use
  Company Number: US-MERCK-0407USA00559

PATIENT
  Age: 42 Month
  Sex: Male
  Weight: 15 kg

DRUGS (3)
  1. SINGULAIR [Suspect]
     Indication: ASTHMA
     Route: 048
     Dates: start: 20020616, end: 20020601
  2. ALBUTEROL [Concomitant]
     Route: 055
     Dates: start: 20020601
  3. ORAPRED [Concomitant]
     Route: 048
     Dates: start: 20020601

REACTIONS (35)
  - ABDOMINAL PAIN UPPER [None]
  - ARTHROPOD BITE [None]
  - ASCITES [None]
  - ASPIRATION [None]
  - BLOOD PRESSURE DECREASED [None]
  - BRAIN DEATH [None]
  - BRAIN HERNIATION [None]
  - BRAIN OEDEMA [None]
  - BRONCHITIS ACUTE [None]
  - CARDIO-RESPIRATORY ARREST [None]
  - CEREBRAL ISCHAEMIA [None]
  - COMA [None]
  - CONVULSION [None]
  - CYANOSIS [None]
  - DIABETES INSIPIDUS [None]
  - DIARRHOEA [None]
  - DISSEMINATED INTRAVASCULAR COAGULATION [None]
  - FAECES DISCOLOURED [None]
  - HYPERGLYCAEMIA [None]
  - HYPOKALAEMIA [None]
  - HYPONATRAEMIA [None]
  - HYPOTENSION [None]
  - INTRACRANIAL PRESSURE INCREASED [None]
  - LOWER RESPIRATORY TRACT INFECTION [None]
  - METABOLIC ACIDOSIS [None]
  - MULTI-ORGAN FAILURE [None]
  - PAPILLOEDEMA [None]
  - PNEUMONIA [None]
  - RESPIRATORY FAILURE [None]
  - SCREAMING [None]
  - SHIFT TO THE LEFT [None]
  - TACHYCARDIA [None]
  - URTICARIA [None]
  - VENTRICULAR TACHYCARDIA [None]
  - VOMITING [None]
